FAERS Safety Report 9506468 (Version 1)
Quarter: 2013Q1

REPORT INFORMATION
  Report Type: Spontaneous
  Country: US (occurrence: None)
  Receive Date: 20130305
  Receipt Date: 20130305
  Transmission Date: 20140127
  Serious: Yes (Hospitalization)
  Sender: FDA-Public Use
  Company Number: 163-21880-12111253

PATIENT
  Age: 59 Year
  Sex: Female
  Weight: 55.9 kg

DRUGS (5)
  1. REVLIMID [Suspect]
     Indication: PLASMA CELL MYELOMA
     Dosage: 21 IN 21 D
     Route: 048
     Dates: start: 201105
  2. ACYCLOVIR [Concomitant]
  3. BACTRIM [Concomitant]
  4. CALCIUM + VITAMIN D [Concomitant]
  5. TYLENOL [Concomitant]

REACTIONS (1)
  - Plasma cell myeloma [None]
